FAERS Safety Report 10433039 (Version 1)
Quarter: 2014Q3

REPORT INFORMATION
  Report Type: Spontaneous
  Country: US (occurrence: US)
  Receive Date: 20140905
  Receipt Date: 20140905
  Transmission Date: 20150326
  Serious: Yes (Other)
  Sender: FDA-Public Use
  Company Number: US-ELI_LILLY_AND_COMPANY-US201408010119

PATIENT
  Sex: Male

DRUGS (1)
  1. CYMBALTA [Suspect]
     Active Substance: DULOXETINE HYDROCHLORIDE
     Indication: ANXIETY
     Dosage: UNK, UNKNOWN
     Route: 065
     Dates: start: 200901, end: 201302

REACTIONS (6)
  - Paraesthesia [Unknown]
  - Sexual dysfunction [Unknown]
  - Anxiety [Unknown]
  - Anger [Unknown]
  - Fear of death [Unknown]
  - Drug withdrawal syndrome [Not Recovered/Not Resolved]
